FAERS Safety Report 7704036-4 (Version None)
Quarter: 2011Q3

REPORT INFORMATION
  Report Type: 
  Country: None (occurrence: None)
  Receive Date: 20110818
  Receipt Date: 20110805
  Transmission Date: 20111222
  Serious: Yes (Other)
  Sender: FDA-Public Use
  Company Number: 1000022844

PATIENT
  Age: 60 Year

DRUGS (11)
  1. ROFLUMILAST (ROFLUMILAST) (TABLETS) [Suspect]
     Indication: CHRONIC OBSTRUCTIVE PULMONARY DISEASE
     Dosage: 500 MCG (500 MCG, 1 IN 1 D), ORAL
     Route: 048
     Dates: start: 20110201, end: 20110201
  2. INDIAN COLCHICUM (HERBAL PREPARATION) (HERBAL PREPARATION) [Concomitant]
  3. TRIMIPRAMINE (TRIMIPRAMINE) (TRIMIPRAMINE) [Concomitant]
  4. ZOPICLONE (ZOPICLONE) (ZOPICLONE) [Concomitant]
  5. ASPIRINE (ACETYLSALICYLIC ACID) (ACETYLSALICYLIC ACID) [Concomitant]
  6. ALBUTEROL (SALBUTAMOL) (SALBUTAMOL) [Concomitant]
  7. THEOPHYLLINE [Concomitant]
  8. SPIRIVA (TIOTROPIUM BROMIDE) (TIOTROPIUM BROMIDE) [Concomitant]
  9. ALLOPURINOL [Concomitant]
  10. PRAVASTATIN [Concomitant]
  11. MARCUMAR (PHENPROCOUMON) (PHENPROCOUMON) [Concomitant]

REACTIONS (3)
  - CEREBRAL INFARCTION [None]
  - CONDITION AGGRAVATED [None]
  - DEPRESSION [None]
